FAERS Safety Report 17559200 (Version 1)
Quarter: 2020Q1

REPORT INFORMATION
  Report Type: Spontaneous
  Country: JP (occurrence: JP)
  Receive Date: 20200319
  Receipt Date: 20200319
  Transmission Date: 20200409
  Serious: No
  Sender: FDA-Public Use
  Company Number: JP-ALKEM LABORATORIES LIMITED-JP-ALKEM-2019-10655

PATIENT
  Age: 53 Year
  Sex: Female

DRUGS (4)
  1. PERPHENAZINE. [Concomitant]
     Active Substance: PERPHENAZINE
     Indication: BIPOLAR DISORDER
     Dosage: 4 MILLIGRAM, QD
     Route: 065
     Dates: start: 200705
  2. ARIPIPRAZOLE. [Suspect]
     Active Substance: ARIPIPRAZOLE
     Indication: COMPULSIVE SHOPPING
     Dosage: 6 MILLIGRAM, QD
     Route: 065
     Dates: start: 200809
  3. ARIPIPRAZOLE. [Suspect]
     Active Substance: ARIPIPRAZOLE
     Dosage: 12 MILLIGRAM, QD
     Route: 065
     Dates: start: 200810
  4. LITHIUM CARBONATE. [Concomitant]
     Active Substance: LITHIUM CARBONATE
     Indication: BIPOLAR DISORDER
     Dosage: 600 MILLIGRAM, QD
     Route: 065
     Dates: start: 200705

REACTIONS (3)
  - Somnolence [Unknown]
  - Condition aggravated [Recovered/Resolved]
  - Decreased interest [Unknown]
